FAERS Safety Report 9862339 (Version 1)
Quarter: 2014Q1

REPORT INFORMATION
  Report Type: Spontaneous
  Country: US (occurrence: US)
  Receive Date: 20140203
  Receipt Date: 20140203
  Transmission Date: 20141002
  Serious: No
  Sender: FDA-Public Use
  Company Number: US-OPTIMER-20130373

PATIENT
  Age: 87 Year
  Sex: Female
  Weight: 59.86 kg

DRUGS (7)
  1. DIFICID [Suspect]
     Indication: CLOSTRIDIUM DIFFICILE COLITIS
     Dosage: 1 TABLET, BID
     Route: 048
     Dates: start: 20130811, end: 20130820
  2. DIFICID [Suspect]
     Dosage: 1 TABLET, ONCE A WEEK
     Route: 048
  3. HYDROCHLOROTHIAZIDE [Concomitant]
     Dosage: 1 TABLET, QD
     Route: 048
  4. ALEVE [Concomitant]
     Dosage: 2 TABLETS, PRN
  5. LIDOCAINE [Concomitant]
     Dosage: PATCH DAILY TO LOW BACK
  6. LIDOCAINE [Concomitant]
     Dosage: PATCH DAILY
  7. LOTRIMIN [Concomitant]
     Dosage: APPLY CREAM BID

REACTIONS (5)
  - Clostridium difficile colitis [Not Recovered/Not Resolved]
  - Disease recurrence [Not Recovered/Not Resolved]
  - Proctalgia [Not Recovered/Not Resolved]
  - Diarrhoea [Not Recovered/Not Resolved]
  - Off label use [Unknown]
